FAERS Safety Report 6055810-4 (Version None)
Quarter: 2009Q1

REPORT INFORMATION
  Report Type: 
  Country: None (occurrence: None)
  Receive Date: 20090128
  Receipt Date: 20090123
  Transmission Date: 20090719
  Serious: Yes (Hospitalization)
  Sender: FDA-Public Use
  Company Number: DK-WYE-G02931709

PATIENT
  Sex: Male
  Weight: 87 kg

DRUGS (5)
  1. TORISEL [Suspect]
     Indication: BRAIN NEOPLASM
     Dates: start: 20081114, end: 20090109
  2. BEVACIZUMAB [Suspect]
     Indication: BRAIN NEOPLASM
     Dates: start: 20081121, end: 20090116
  3. PREDNISOLONE [Concomitant]
     Indication: OEDEMA
  4. AMMONIUM BROMIDE/CAFFEINE/PHENOBARBITAL/PHENYTOIN/SODIUM BROMIDE [Concomitant]
     Indication: EPILEPSY
  5. LAMOTRIGINE [Concomitant]
     Indication: EPILEPSY

REACTIONS (1)
  - DEEP VEIN THROMBOSIS [None]
